FAERS Safety Report 8161953-1 (Version None)
Quarter: 2012Q1

REPORT INFORMATION
  Report Type: 
  Country: None (occurrence: None)
  Receive Date: 20120224
  Receipt Date: 20120220
  Transmission Date: 20120608
  Serious: Yes (Other)
  Sender: FDA-Public Use
  Company Number: US-PFIZER INC-2012044773

PATIENT
  Sex: Female
  Weight: 63.492 kg

DRUGS (3)
  1. NAPROXEN SODIUM [Suspect]
     Indication: OSTEOARTHRITIS
     Dosage: UNK
     Dates: start: 20120213, end: 20120215
  2. CELEBREX [Suspect]
     Indication: OSTEOARTHRITIS
     Dosage: UNK
     Dates: start: 20020101, end: 20111201
  3. LIPITOR [Concomitant]
     Indication: BLOOD CHOLESTEROL INCREASED
     Dosage: UNK

REACTIONS (5)
  - HAEMATOCHEZIA [None]
  - ABDOMINAL PAIN UPPER [None]
  - VOMITING [None]
  - HYPERSENSITIVITY [None]
  - MALAISE [None]
